FAERS Safety Report 13251326 (Version 1)
Quarter: 2017Q1

REPORT INFORMATION
  Report Type: Spontaneous
  Country: IT (occurrence: IT)
  Receive Date: 20170220
  Receipt Date: 20170220
  Transmission Date: 20170428
  Serious: Yes (Other)
  Sender: FDA-Public Use
  Company Number: IT-AUROBINDO-AUR-APL-2017-29860

PATIENT
  Age: 73 Year
  Sex: Male

DRUGS (11)
  1. PAROXETINE. [Concomitant]
     Active Substance: PAROXETINE
     Indication: TYPE 1 DIABETES MELLITUS
     Dosage: 1 DF, UNK
     Route: 048
  2. NOVORAPID [Concomitant]
     Active Substance: INSULIN ASPART
     Indication: TYPE 1 DIABETES MELLITUS
     Dosage: 32 DF, UNK
     Route: 058
  3. LANTUS [Concomitant]
     Active Substance: INSULIN GLARGINE
     Indication: TYPE 1 DIABETES MELLITUS
     Dosage: 38 DF, UNK
     Route: 058
  4. BISOPROLOL FUMARATE. [Concomitant]
     Active Substance: BISOPROLOL FUMARATE
     Indication: TYPE 1 DIABETES MELLITUS
     Dosage: 1 DF, UNK
     Route: 048
  5. MOXIFLOXACIN 400MG [Suspect]
     Active Substance: MOXIFLOXACIN
     Indication: BRONCHITIS
     Dosage: 400 MG, DAILY
     Route: 048
     Dates: start: 20170110, end: 20170118
  6. CARDURA [Concomitant]
     Active Substance: DOXAZOSIN MESYLATE
     Indication: HYPERTENSION
     Dosage: 8 MG, UNK
     Route: 048
  7. LASIX [Concomitant]
     Active Substance: FUROSEMIDE
     Indication: TYPE 1 DIABETES MELLITUS
     Dosage: 25 MG, UNK
     Route: 048
  8. NEURABEN [Concomitant]
     Active Substance: CYANOCOBALAMIN\PYRIDOXINE\THIAMINE
     Indication: TYPE 1 DIABETES MELLITUS
     Dosage: 1 DF, UNK
     Route: 048
  9. CARDIOASPIRIN [Concomitant]
     Active Substance: ASPIRIN
     Indication: TYPE 1 DIABETES MELLITUS
     Dosage: 100 MG, UNK
     Route: 048
  10. TELMISARTAN. [Concomitant]
     Active Substance: TELMISARTAN
     Indication: TYPE 1 DIABETES MELLITUS
     Dosage: 80 MG, UNK
     Route: 048
  11. ATORVASTATINA [Concomitant]
     Active Substance: ATORVASTATIN
     Indication: TYPE 1 DIABETES MELLITUS
     Dosage: 20 MG, UNK
     Route: 048

REACTIONS (2)
  - Pruritus [Recovering/Resolving]
  - Erythema [Recovering/Resolving]

NARRATIVE: CASE EVENT DATE: 20170116
